FAERS Safety Report 16068841 (Version 2)
Quarter: 2019Q2

REPORT INFORMATION
  Report Type: Report from Study
  Country: US (occurrence: US)
  Receive Date: 20190313
  Receipt Date: 20190426
  Transmission Date: 20190711
  Serious: No
  Sender: FDA-Public Use
  Company Number: US-SHIRE-US201907669

PATIENT
  Age: 55 Year
  Sex: Female

DRUGS (1)
  1. HUMAN NORMAL IMMUNOGLOBULIN; LIQUID [Suspect]
     Active Substance: HUMAN IMMUNOGLOBULIN G
     Indication: PRIMARY IMMUNODEFICIENCY SYNDROME
     Dosage: UNK
     Route: 042

REACTIONS (5)
  - Nausea [Unknown]
  - Rosacea [Unknown]
  - Eczema [Unknown]
  - Androgenetic alopecia [Unknown]
  - Headache [Unknown]

NARRATIVE: CASE EVENT DATE: 201901
